FAERS Safety Report 11609925 (Version 2)
Quarter: 2015Q4

REPORT INFORMATION
  Report Type: Spontaneous
  Country: US (occurrence: US)
  Receive Date: 20151007
  Receipt Date: 20151104
  Transmission Date: 20160304
  Serious: No
  Sender: FDA-Public Use
  Company Number: US-009507513-1509USA014672

PATIENT
  Sex: Female

DRUGS (2)
  1. NEXPLANON [Suspect]
     Active Substance: ETONOGESTREL
     Indication: CONTRACEPTION
     Dosage: 68 MG IMPLANT/ 3 YEARS IN LEFT ARM
     Route: 059
     Dates: start: 20150831
  2. LIDOCAINE. [Suspect]
     Active Substance: LIDOCAINE
     Dosage: UNK
     Dates: start: 20150924

REACTIONS (5)
  - Facial bones fracture [Not Recovered/Not Resolved]
  - Device kink [Not Recovered/Not Resolved]
  - Spinal compression fracture [Unknown]
  - Implant site erythema [Recovered/Resolved]
  - Implant site pruritus [Recovered/Resolved]

NARRATIVE: CASE EVENT DATE: 2015
